FAERS Safety Report 7059876-4 (Version None)
Quarter: 2010Q4

REPORT INFORMATION
  Report Type: 
  Country: None (occurrence: None)
  Receive Date: 20101025
  Receipt Date: 20101013
  Transmission Date: 20110411
  Serious: Yes (Other)
  Sender: FDA-Public Use
  Company Number: PHFR2010GB02938

PATIENT
  Age: 36 Year
  Sex: Female

DRUGS (1)
  1. TEGRETOL [Suspect]
     Indication: PARTIAL SEIZURES WITH SECONDARY GENERALISATION
     Dosage: 600 MG, BID

REACTIONS (2)
  - ANTICONVULSANT DRUG LEVEL ABOVE THERAPEUTIC [None]
  - OBESITY [None]
